FAERS Safety Report 12715471 (Version 1)
Quarter: 2016Q3

REPORT INFORMATION
  Report Type: Report from Study
  Country: US (occurrence: US)
  Receive Date: 20160906
  Receipt Date: 20160906
  Transmission Date: 20161109
  Serious: Yes (Other)
  Sender: FDA-Public Use
  Company Number: US-ROCHE-1825345

PATIENT
  Age: 69 Year
  Sex: Male
  Weight: 124.3 kg

DRUGS (14)
  1. IXABEPILONE [Suspect]
     Active Substance: IXABEPILONE
     Route: 065
     Dates: start: 20140714
  2. BEVACIZUMAB [Suspect]
     Active Substance: BEVACIZUMAB
     Route: 065
     Dates: start: 20140421
  3. BEVACIZUMAB [Suspect]
     Active Substance: BEVACIZUMAB
     Route: 065
     Dates: start: 20140623
  4. IXABEPILONE [Suspect]
     Active Substance: IXABEPILONE
     Route: 065
     Dates: start: 20141002
  5. IXABEPILONE [Suspect]
     Active Substance: IXABEPILONE
     Indication: CLEAR CELL RENAL CELL CARCINOMA
     Dosage: LAST TREATMENT DATE 02/JAN/2015
     Route: 065
     Dates: start: 20140331
  6. IXABEPILONE [Suspect]
     Active Substance: IXABEPILONE
     Route: 065
     Dates: start: 20141030
  7. BEVACIZUMAB [Suspect]
     Active Substance: BEVACIZUMAB
     Route: 065
     Dates: start: 20140714
  8. IXABEPILONE [Suspect]
     Active Substance: IXABEPILONE
     Route: 065
     Dates: start: 20140421
  9. BEVACIZUMAB [Suspect]
     Active Substance: BEVACIZUMAB
     Route: 065
     Dates: start: 20141002
  10. BEVACIZUMAB [Suspect]
     Active Substance: BEVACIZUMAB
     Route: 065
     Dates: start: 20141030
  11. BEVACIZUMAB [Suspect]
     Active Substance: BEVACIZUMAB
     Indication: CLEAR CELL RENAL CELL CARCINOMA
     Dosage: LAST TREATMENT DATE 02/JAN/2015
     Route: 065
     Dates: start: 20140331
  12. BEVACIZUMAB [Suspect]
     Active Substance: BEVACIZUMAB
     Route: 065
     Dates: start: 20140811
  13. IXABEPILONE [Suspect]
     Active Substance: IXABEPILONE
     Route: 065
     Dates: start: 20140811
  14. IXABEPILONE [Suspect]
     Active Substance: IXABEPILONE
     Route: 065
     Dates: start: 20140623

REACTIONS (4)
  - Acute kidney injury [Unknown]
  - Aspartate aminotransferase increased [Unknown]
  - Thrombosis [Unknown]
  - Alanine aminotransferase increased [Unknown]
